FAERS Safety Report 17247095 (Version 4)
Quarter: 2020Q1

REPORT INFORMATION
  Report Type: Spontaneous
  Country: US (occurrence: US)
  Receive Date: 20200108
  Receipt Date: 20200312
  Transmission Date: 20200409
  Serious: Yes (Hospitalization, Other)
  Sender: FDA-Public Use
  Company Number: US-JNJFOC-20191222546

PATIENT
  Sex: Male

DRUGS (1)
  1. ERLEADA [Suspect]
     Active Substance: APALUTAMIDE
     Indication: PRODUCT USED FOR UNKNOWN INDICATION
     Dosage: 60 MG X 4 TABLETS
     Route: 048

REACTIONS (6)
  - Anxiety [Unknown]
  - Swelling face [Unknown]
  - Diarrhoea [Unknown]
  - Adverse reaction [Unknown]
  - Malignant neoplasm progression [Unknown]
  - Nervousness [Unknown]
